FAERS Safety Report 18098014 (Version 1)
Quarter: 2020Q3

REPORT INFORMATION
  Report Type: Spontaneous
  Country: PT (occurrence: PT)
  Receive Date: 20200731
  Receipt Date: 20200731
  Transmission Date: 20201103
  Serious: Yes (Other)
  Sender: FDA-Public Use
  Company Number: PT-SUNOVION-2018SUN005132

PATIENT

DRUGS (6)
  1. ESLICARBAZEPINE ACETATE [Suspect]
     Active Substance: ESLICARBAZEPINE ACETATE
     Indication: TRIGEMINAL NEURALGIA
     Dosage: UNK
     Route: 065
  2. CARBAMAZEPINE. [Suspect]
     Active Substance: CARBAMAZEPINE
     Indication: TRIGEMINAL NEURALGIA
     Route: 065
  3. DIAZEPAM. [Concomitant]
     Active Substance: DIAZEPAM
     Indication: TRIGEMINAL NEURALGIA
  4. PREGABALIN. [Concomitant]
     Active Substance: PREGABALIN
     Indication: TRIGEMINAL NEURALGIA
  5. METAMIZOL [Concomitant]
     Active Substance: METAMIZOLE SODIUM
     Indication: TRIGEMINAL NEURALGIA
  6. GABAPENTIN. [Concomitant]
     Active Substance: GABAPENTIN
     Indication: TRIGEMINAL NEURALGIA

REACTIONS (3)
  - Off label use [Unknown]
  - Rash maculo-papular [Recovered/Resolved]
  - Eosinophilia [Recovered/Resolved]
